FAERS Safety Report 4548402-7 (Version None)
Quarter: 2005Q1

REPORT INFORMATION
  Report Type: 
  Country: None (occurrence: None)
  Receive Date: 20050106
  Receipt Date: 20050105
  Transmission Date: 20050727
  Serious: Yes (Life-Threatening)
  Sender: FDA-Public Use
  Company Number: 211010

PATIENT
  Age: 16 Year
  Sex: Female

DRUGS (1)
  1. XOLAIR [Suspect]
     Indication: ASTHMA
     Dosage: 150MG, Q4W
     Dates: start: 20030913, end: 20041001

REACTIONS (1)
  - ANAPHYLACTIC REACTION [None]
